FAERS Safety Report 5675968-6 (Version None)
Quarter: 2008Q2

REPORT INFORMATION
  Report Type: 
  Country: None (occurrence: None)
  Receive Date: 20080310
  Receipt Date: 20071219
  Transmission Date: 20081010
  Serious: Yes (Other)
  Sender: FDA-Public Use
  Company Number: 07-543

PATIENT
  Sex: Male

DRUGS (1)
  1. ALEVE [Suspect]
     Dosage: 220 MG, DAILY, ORAL
     Route: 048
     Dates: start: 20071211

REACTIONS (3)
  - CHOKING SENSATION [None]
  - DYSPNOEA [None]
  - NASAL CONGESTION [None]
